FAERS Safety Report 18914604 (Version 4)
Quarter: 2021Q2

REPORT INFORMATION
  Report Type: Report from Study
  Country: CA (occurrence: CA)
  Receive Date: 20210219
  Receipt Date: 20210521
  Transmission Date: 20210717
  Serious: Yes (Hospitalization, Other)
  Sender: FDA-Public Use
  Company Number: CA-JNJFOC-20210219297

PATIENT
  Age: 41 Year
  Sex: Female
  Weight: 80.81 kg

DRUGS (2)
  1. STELARA [Suspect]
     Active Substance: USTEKINUMAB
     Route: 042
     Dates: start: 20210513
  2. STELARA [Suspect]
     Active Substance: USTEKINUMAB
     Indication: CROHN^S DISEASE
     Route: 058
     Dates: start: 20181129

REACTIONS (5)
  - Catheter site infection [Recovering/Resolving]
  - Postoperative wound infection [Recovering/Resolving]
  - Colectomy [Unknown]
  - Ileostomy [Unknown]
  - Diarrhoea [Not Recovered/Not Resolved]
